FAERS Safety Report 9175267 (Version 3)
Quarter: 2013Q2

REPORT INFORMATION
  Report Type: Spontaneous
  Country: US (occurrence: US)
  Receive Date: 20130320
  Receipt Date: 20130430
  Transmission Date: 20140414
  Serious: Yes (Hospitalization, Other)
  Sender: FDA-Public Use
  Company Number: US-PFIZER INC-2013061084

PATIENT
  Age: 62 Year
  Sex: Male

DRUGS (4)
  1. REVATIO [Suspect]
     Indication: PULMONARY ARTERIAL HYPERTENSION
     Dosage: 20 MG, 3X/DAY (NOT TO TAKE WITH NITRATES)
     Route: 048
     Dates: start: 20010707
  2. BUMEX [Concomitant]
     Indication: CARDIAC FAILURE
     Dosage: 6 MG, 2X/DAY
  3. EPLERENONE [Concomitant]
     Indication: CARDIAC FAILURE
     Dosage: 25 MG, 1X/DAY
  4. METOPROLOL [Concomitant]
     Indication: CARDIAC FAILURE
     Dosage: 25 MG, 1X/DAY

REACTIONS (4)
  - Cardiac failure [Recovered/Resolved]
  - Mitral valve stenosis [Unknown]
  - Mitral valve incompetence [Unknown]
  - Left ventricular dysfunction [Unknown]
